FAERS Safety Report 8008554-3 (Version None)
Quarter: 2011Q4

REPORT INFORMATION
  Report Type: 
  Country: None (occurrence: None)
  Receive Date: 20111227
  Receipt Date: 20111215
  Transmission Date: 20120403
  Serious: Yes (Other)
  Sender: FDA-Public Use
  Company Number: US-ASTRAZENECA-2011SE76347

PATIENT
  Age: 58 Year
  Sex: Male
  Weight: 98.4 kg

DRUGS (22)
  1. SEROQUEL [Suspect]
     Dosage: 100MG BREAKFAST,600MG AFTER SUPPER,MAY ADD 100MG AT LUNCH IF ANXIOUS OR IRRITABLE, DAILY DOSE 800MG
     Route: 048
  2. NUCYNTA [Concomitant]
  3. FLUTICASONE INHALER [Concomitant]
     Dosage: PRN
  4. SEROQUEL [Suspect]
     Dosage: 200 MG X 1/2 IN THE AM AND TWO IN EVENNING
     Route: 048
  5. PRILOSEC [Concomitant]
     Route: 048
  6. ANTIBIOTICS [Concomitant]
     Indication: SKIN INFECTION
  7. LISINOPRIL [Concomitant]
     Route: 048
  8. DICLOFENAC SODIUM [Concomitant]
     Indication: NECK PAIN
  9. HYDROCHLOROTHIAZIDE [Concomitant]
  10. SOMA [Concomitant]
  11. MUPIROCIN [Concomitant]
     Indication: STAPHYLOCOCCAL SKIN INFECTION
  12. ABILIFY [Concomitant]
  13. DICLOFENAC SODIUM [Concomitant]
     Indication: MUSCULOSKELETAL PAIN
  14. EFFEXOR XR [Concomitant]
  15. SULFAMETHOXAZOLE [Concomitant]
     Indication: STAPHYLOCOCCAL SKIN INFECTION
  16. METOPROLOL SUCCINATE [Concomitant]
     Route: 048
  17. OXYCODONE HCL [Concomitant]
  18. IBUPROFEN (ADVIL) [Concomitant]
  19. ATORVASTATIN CALCIUM [Concomitant]
  20. ALBUTEROL INHALER [Concomitant]
     Dosage: PRN
  21. LAMICTAL [Concomitant]
  22. ZYPREXA [Concomitant]

REACTIONS (20)
  - MUSCULOSKELETAL PAIN [None]
  - SUBDURAL HAEMATOMA [None]
  - INJURY [None]
  - HAEMATEMESIS [None]
  - COGNITIVE DISORDER [None]
  - MEMORY IMPAIRMENT [None]
  - SOMNOLENCE [None]
  - HYPOXIA [None]
  - OCCIPITAL NEURALGIA [None]
  - IRRITABILITY [None]
  - PAIN [None]
  - HEADACHE [None]
  - APHASIA [None]
  - ENCEPHALOMALACIA [None]
  - PULMONARY HYPERTENSION [None]
  - DYSPEPSIA [None]
  - FATIGUE [None]
  - WEIGHT INCREASED [None]
  - MUSCULOSKELETAL DISCOMFORT [None]
  - INTERVERTEBRAL DISC DISORDER [None]
